FAERS Safety Report 23755680 (Version 1)
Quarter: 2024Q2

REPORT INFORMATION
  Report Type: Spontaneous
  Country: ZA (occurrence: ZA)
  Receive Date: 20240418
  Receipt Date: 20240418
  Transmission Date: 20240716
  Serious: Yes (Other)
  Sender: FDA-Public Use
  Company Number: ZA-AUROBINDO-AUR-APL-2024-017477

PATIENT
  Age: 27 Day
  Sex: Female
  Weight: 5 kg

DRUGS (2)
  1. AMPICILLIN [Suspect]
     Active Substance: AMPICILLIN
     Indication: Pneumonia
     Dosage: 300 MILLIGRAM
     Route: 042
     Dates: start: 20240316, end: 20240316
  2. CLONIDINE [Concomitant]
     Active Substance: CLONIDINE
     Indication: Restlessness
     Dosage: 25 MCG
     Route: 048
     Dates: start: 20240316, end: 20240316

REACTIONS (2)
  - Hypotonia [Recovered/Resolved]
  - Apnoea [Recovered/Resolved]

NARRATIVE: CASE EVENT DATE: 20240316
